FAERS Safety Report 9822409 (Version 8)
Quarter: 2014Q2

REPORT INFORMATION
  Report Type: Spontaneous
  Country: US (occurrence: US)
  Receive Date: 20140116
  Receipt Date: 20140606
  Transmission Date: 20141212
  Serious: Yes (Hospitalization, Other)
  Sender: FDA-Public Use
  Company Number: US-JNJFOC-20140103200

PATIENT
  Age: 83 Year
  Sex: Female
  Weight: 61.24 kg

DRUGS (13)
  1. XARELTO [Suspect]
     Indication: CEREBROVASCULAR ACCIDENT PROPHYLAXIS
     Dosage: PM
     Route: 048
     Dates: start: 20140113
  2. XARELTO [Suspect]
     Indication: CEREBROVASCULAR ACCIDENT PROPHYLAXIS
     Route: 048
     Dates: start: 201311
  3. XARELTO [Suspect]
     Indication: CEREBROVASCULAR ACCIDENT PROPHYLAXIS
     Route: 048
     Dates: start: 20131220
  4. XARELTO [Suspect]
     Indication: ATRIAL FIBRILLATION
     Route: 048
     Dates: start: 20131220
  5. XARELTO [Suspect]
     Indication: ATRIAL FIBRILLATION
     Dosage: PM
     Route: 048
     Dates: start: 20140113
  6. XARELTO [Suspect]
     Indication: ATRIAL FIBRILLATION
     Route: 048
     Dates: start: 201311
  7. ADVIL [Suspect]
     Indication: PRODUCT USED FOR UNKNOWN INDICATION
     Route: 065
  8. MULTAQ [Concomitant]
     Route: 065
  9. ADVIL PM [Concomitant]
     Route: 065
  10. ASA [Concomitant]
     Route: 048
     Dates: start: 20140103
  11. CARDIZEM LA [Concomitant]
     Route: 048
  12. FLECAINIDE [Concomitant]
     Route: 048
     Dates: start: 20140118
  13. PRILOSEC [Concomitant]
     Route: 065

REACTIONS (6)
  - Haemarthrosis [Recovered/Resolved with Sequelae]
  - Haemoglobin decreased [Unknown]
  - Fracture [Unknown]
  - International normalised ratio increased [Unknown]
  - Arthropathy [Unknown]
  - Arthralgia [Unknown]
